FAERS Safety Report 6886835-4 (Version None)
Quarter: 2010Q3

REPORT INFORMATION
  Report Type: 
  Country: None (occurrence: None)
  Receive Date: 20100730
  Receipt Date: 20100720
  Transmission Date: 20110219
  Serious: Yes (Other)
  Sender: FDA-Public Use
  Company Number: US-PFIZER INC-2010091396

PATIENT
  Sex: Female
  Weight: 57 kg

DRUGS (3)
  1. XALATAN [Suspect]
     Indication: GLAUCOMA
     Dosage: ONE DROP, DAILY IN BOTH EYES
     Route: 047
     Dates: start: 19970101
  2. BETOPTIC [Concomitant]
     Indication: GLAUCOMA
     Dosage: UNK
  3. THERA TEARS [Concomitant]
     Indication: DRY EYE
     Dosage: UNK

REACTIONS (4)
  - CONJUNCTIVITIS [None]
  - EYE DISORDER [None]
  - EYE SWELLING [None]
  - EYELID INFECTION [None]
